FAERS Safety Report 11898824 (Version 1)
Quarter: 2016Q1

REPORT INFORMATION
  Report Type: Spontaneous
  Country: US (occurrence: None)
  Receive Date: 20160107
  Receipt Date: 20160107
  Transmission Date: 20160526
  Serious: Yes (Hospitalization)
  Sender: FDA-Public Use
  Company Number: None

PATIENT
  Age: 64 Year
  Sex: Male
  Weight: 74 kg

DRUGS (8)
  1. IODIXANOL [Concomitant]
     Active Substance: IODIXANOL
  2. LORAZEPAM. [Concomitant]
     Active Substance: LORAZEPAM
  3. FOLEY [Concomitant]
  4. APAP [Concomitant]
     Active Substance: ACETAMINOPHEN
  5. ONDANSETRON [Concomitant]
     Active Substance: ONDANSETRON
  6. VANCOMYCIN [Suspect]
     Active Substance: VANCOMYCIN
     Indication: MENINGITIS
     Dates: start: 20151217, end: 20160101
  7. GLUCOSE [Concomitant]
     Active Substance: DEXTROSE
  8. SODIUM CHLORIDE. [Concomitant]
     Active Substance: SODIUM CHLORIDE

REACTIONS (4)
  - Seizure [None]
  - Skin exfoliation [None]
  - Skin discolouration [None]
  - Dry skin [None]

NARRATIVE: CASE EVENT DATE: 20160105
